FAERS Safety Report 7247547-0 (Version None)
Quarter: 2011Q1

REPORT INFORMATION
  Report Type: 
  Country: None (occurrence: None)
  Receive Date: 20110127
  Receipt Date: 20110124
  Transmission Date: 20110831
  Serious: Yes (Death, Other)
  Sender: FDA-Public Use
  Company Number: PHHY2011CA02662

PATIENT
  Sex: Female

DRUGS (1)
  1. ZOMETA [Suspect]
     Indication: BREAST CANCER METASTATIC
     Dosage: 4 MG
     Route: 042
     Dates: start: 20101213

REACTIONS (5)
  - MALAISE [None]
  - DEATH [None]
  - ASTHENIA [None]
  - PATHOLOGICAL FRACTURE [None]
  - UNDERWEIGHT [None]
